FAERS Safety Report 17295271 (Version 3)
Quarter: 2020Q1

REPORT INFORMATION
  Report Type: Spontaneous
  Country: US (occurrence: US)
  Receive Date: 20200121
  Receipt Date: 20200219
  Transmission Date: 20200409
  Serious: No
  Sender: FDA-Public Use
  Company Number: US-PFIZER INC-2020026447

PATIENT
  Age: 91 Year
  Sex: Female
  Weight: 55 kg

DRUGS (1)
  1. ARTHROTEC [Suspect]
     Active Substance: DICLOFENAC SODIUM\MISOPROSTOL
     Dosage: UNK, 2X/DAY [7.5/200 BID (TWICE A DAY)]

REACTIONS (2)
  - Gait disturbance [Unknown]
  - Arthritis [Unknown]
